FAERS Safety Report 4789738-4 (Version None)
Quarter: 2005Q4

REPORT INFORMATION
  Report Type: 
  Country: None (occurrence: None)
  Receive Date: 20051006
  Receipt Date: 20050921
  Transmission Date: 20060501
  Serious: Yes (Other)
  Sender: FDA-Public Use
  Company Number: GBWYE995821SEP05

PATIENT
  Age: 37 Year
  Sex: Female
  Weight: 78 kg

DRUGS (6)
  1. ENBREL [Suspect]
     Indication: RHEUMATOID ARTHRITIS
     Dosage: 25MG (FREQUENCY UNKNOWN)
     Route: 058
     Dates: start: 20040924
  2. METHOTREXATE [Suspect]
     Dosage: 5MG (FREQUENCY UNSPECIFIED)
     Route: 048
  3. ETODOLAC [Concomitant]
     Route: 048
     Dates: start: 20010301
  4. CODEINE PHOSPHATE [Concomitant]
     Dosage: 15-30MG FOUR TIMES DAILY
     Route: 048
     Dates: start: 20041001
  5. AMITRIPTYLINE HCL [Concomitant]
     Dosage: 10MG EVERY EVENING
     Route: 048
  6. CARBOMER [Concomitant]
     Route: 065

REACTIONS (2)
  - NEUTROPENIA [None]
  - WHITE BLOOD CELL COUNT DECREASED [None]
